FAERS Safety Report 5041854-8 (Version None)
Quarter: 2006Q2

REPORT INFORMATION
  Report Type: 
  Country: None (occurrence: None)
  Receive Date: 20060630
  Receipt Date: 20060626
  Transmission Date: 20061013
  Serious: Yes (Hospitalization)
  Sender: FDA-Public Use
  Company Number: GXKR2006US01454

PATIENT
  Age: 79 Year
  Sex: Female

DRUGS (5)
  1. SIMVASTATIN [Suspect]
     Indication: HYPERLIPIDAEMIA
     Dosage: 20 MG; 40 MG
  2. SIMVASTATIN [Suspect]
     Indication: HYPERLIPIDAEMIA
     Dosage: 20 MG; 40 MG
  3. NEFAZODONE HCL [Suspect]
     Dosage: 150 MG, BID
  4. ZOLPIDEM (ZOLPIDEM) [Concomitant]
  5. WARFARIN SODIUM [Concomitant]

REACTIONS (8)
  - ABASIA [None]
  - ALANINE AMINOTRANSFERASE INCREASED [None]
  - ASPARTATE AMINOTRANSFERASE INCREASED [None]
  - DRUG INTERACTION [None]
  - DRUG LEVEL INCREASED [None]
  - HAEMATURIA [None]
  - PROTEINURIA [None]
  - RHABDOMYOLYSIS [None]
